FAERS Safety Report 13637297 (Version 5)
Quarter: 2018Q4

REPORT INFORMATION
  Report Type: Spontaneous
  Country: FR (occurrence: FR)
  Receive Date: 20170609
  Receipt Date: 20181119
  Transmission Date: 20190204
  Serious: Yes (Death, Other)
  Sender: FDA-Public Use
  Company Number: FR-PFIZER INC-2017248590

PATIENT
  Age: 46 Year
  Sex: Male
  Weight: 94 kg

DRUGS (2)
  1. SUTENT [Suspect]
     Active Substance: SUNITINIB MALATE
     Dosage: 25 MG, 2X/DAY FOR 14 DAYS, FOLLOWED BY A ONE-WEEK BREAK
     Route: 048
     Dates: end: 20170411
  2. SUTENT [Suspect]
     Active Substance: SUNITINIB MALATE
     Indication: THYROID CANCER
     Dosage: 25 MG, 2X/DAY FOR 14 DAYS, FOLLOWED BY A ONE-WEEK BREAK
     Route: 048
     Dates: start: 20170328, end: 20170411

REACTIONS (7)
  - Product use in unapproved indication [Recovered/Resolved]
  - Pleural effusion [Fatal]
  - Expired product administered [Recovered/Resolved]
  - Multiple organ dysfunction syndrome [Fatal]
  - Acute respiratory distress syndrome [Fatal]
  - Anuria [Fatal]
  - Poisoning [Unknown]

NARRATIVE: CASE EVENT DATE: 20170415
